FAERS Safety Report 7496631-5 (Version None)
Quarter: 2011Q2

REPORT INFORMATION
  Report Type: 
  Country: None (occurrence: None)
  Receive Date: 20110523
  Receipt Date: 20110512
  Transmission Date: 20111010
  Serious: Yes (Hospitalization)
  Sender: FDA-Public Use
  Company Number: A0727752A

PATIENT
  Age: 63 Year
  Sex: Female
  Weight: 90.9 kg

DRUGS (32)
  1. OXYBUTYNIN CHLORIDE [Concomitant]
     Dosage: 5MG PER DAY
  2. PANTOPRAZOLE SODIUM [Concomitant]
     Dosage: 40MG THREE TIMES PER DAY
  3. PERCOCET [Concomitant]
  4. NITROGLYCERIN [Concomitant]
  5. ASPIRIN [Concomitant]
     Dosage: 81MG PER DAY
  6. DOCUSATE SODIUM [Concomitant]
  7. TEMAZ [Concomitant]
  8. MORPHINE SULFATE [Concomitant]
  9. MULTI-VITAMIN [Concomitant]
  10. ACETAMINOPHEN [Concomitant]
     Dosage: 650MG AS REQUIRED
  11. ALPRAZOLAM [Concomitant]
  12. PLAVIX [Concomitant]
     Dosage: 75MG PER DAY
  13. AVANDIA [Suspect]
     Dosage: 8MG PER DAY
     Route: 048
     Dates: start: 20000421
  14. SODIUM CHLORIDE [Concomitant]
  15. NITROGLYCERIN [Concomitant]
  16. VERSED [Concomitant]
  17. ALUMINUM HYDROXIDE TAB [Concomitant]
  18. LASIX [Concomitant]
     Dosage: 40MG PER DAY
  19. LOPRESSOR [Concomitant]
     Dosage: 25MG TWICE PER DAY
  20. INSULIN [Concomitant]
  21. ATROPINE SULFATE [Concomitant]
  22. BISACODYL [Concomitant]
  23. OPIUM/BELLADONNA [Concomitant]
  24. CELEBREX [Concomitant]
     Dosage: 200MG TWICE PER DAY
  25. CARDIZEM [Concomitant]
     Dosage: 240MG PER DAY
  26. VITAMIN E [Concomitant]
  27. GUAIFENESIN CODEINE [Concomitant]
  28. DOLASETRON [Concomitant]
  29. SODIUM PHOSPHATES [Concomitant]
  30. ALTACE [Concomitant]
     Dosage: 5MG PER DAY
  31. TOPROL-XL [Concomitant]
     Dosage: 100MG PER DAY
  32. ASCORBIC ACID [Concomitant]

REACTIONS (2)
  - MYOCARDIAL INFARCTION [None]
  - CORONARY ARTERY DISEASE [None]
